FAERS Safety Report 4645833-1 (Version None)
Quarter: 2005Q2

REPORT INFORMATION
  Report Type: 
  Country: None (occurrence: None)
  Receive Date: 20050422
  Receipt Date: 20050422
  Transmission Date: 20051028
  Serious: Yes (Hospitalization)
  Sender: FDA-Public Use
  Company Number: None

PATIENT
  Age: 63 Year
  Sex: Male
  Weight: 69.8539 kg

DRUGS (1)
  1. CIPRO [Suspect]
     Indication: UROSEPSIS
     Dosage: 400 MG   Q 12 HRS INTRAVENOUS
     Route: 042
     Dates: start: 20050404, end: 20050408

REACTIONS (1)
  - DIARRHOEA [None]
